FAERS Safety Report 4376217-1 (Version None)
Quarter: 2004Q2

REPORT INFORMATION
  Report Type: 
  Country: None (occurrence: None)
  Receive Date: 20040607
  Receipt Date: 20040227
  Transmission Date: 20050107
  Serious: Yes (Hospitalization)
  Sender: FDA-Public Use
  Company Number: US-SHR-04-021815

PATIENT
  Age: 57 Year
  Sex: Male
  Weight: 75 kg

DRUGS (2)
  1. CAMPATH [Suspect]
     Indication: CHRONIC LYMPHOCYTIC LEUKAEMIA
     Dosage: 30 MG, 3X/WEEK, INTRAVENOUS
     Route: 042
     Dates: start: 20030101, end: 20040201
  2. GM-CSF (SARGRAMOSTIM) INJECTION [Concomitant]

REACTIONS (2)
  - CYTOMEGALOVIRUS INFECTION [None]
  - NEUTROPENIA [None]
